FAERS Safety Report 21054573 (Version 2)
Quarter: 2025Q4

REPORT INFORMATION
  Report Type: Report from Study
  Country: JP (occurrence: JP)
  Receive Date: 20220707
  Receipt Date: 20251126
  Transmission Date: 20260117
  Serious: Yes (Other)
  Sender: EMD SERONO INC
  Company Number: JP-Merck Healthcare KGaA-9334411

PATIENT
  Age: 75 Year
  Sex: Male

DRUGS (6)
  1. BAVENCIO [Suspect]
     Active Substance: AVELUMAB
     Indication: Metastatic renal cell carcinoma
     Dates: start: 20200512
  2. BAVENCIO [Suspect]
     Active Substance: AVELUMAB
     Dates: start: 20210617, end: 20211216
  3. TENELIGLIPTIN [Suspect]
     Active Substance: TENELIGLIPTIN
     Indication: Type 2 diabetes mellitus
     Dates: start: 20201017, end: 20211224
  4. AXITINIB [Concomitant]
     Active Substance: AXITINIB
     Indication: Metastatic renal cell carcinoma
     Dates: start: 20200512
  5. DIPHENHYDRAMINE HYDROCHLORIDE [Concomitant]
     Active Substance: DIPHENHYDRAMINE HYDROCHLORIDE
     Indication: Premedication
  6. CALONAL [Concomitant]
     Active Substance: ACETAMINOPHEN
     Indication: Premedication

REACTIONS (1)
  - Pemphigoid [Recovering/Resolving]

NARRATIVE: CASE EVENT DATE: 20211216
